FAERS Safety Report 23099147 (Version 1)
Quarter: 2023Q4

REPORT INFORMATION
  Report Type: Report from Study
  Country: US (occurrence: US)
  Receive Date: 20231024
  Receipt Date: 20231024
  Transmission Date: 20240109
  Serious: Yes (Disabling)
  Sender: FDA-Public Use
  Company Number: US-BEIGENE-BGN-2023-011959

PATIENT

DRUGS (2)
  1. BRUKINSA [Suspect]
     Active Substance: ZANUBRUTINIB
     Indication: Bronchial neoplasm
     Dosage: 160 MILLIGRAM, BID
     Route: 048
     Dates: start: 20230501, end: 202309
  2. BRUKINSA [Suspect]
     Active Substance: ZANUBRUTINIB
     Indication: Lung neoplasm malignant

REACTIONS (3)
  - Cataract [Not Recovered/Not Resolved]
  - Vision blurred [Not Recovered/Not Resolved]
  - Off label use [Unknown]

NARRATIVE: CASE EVENT DATE: 20230501
